FAERS Safety Report 9293316 (Version 1)
Quarter: 2013Q2

REPORT INFORMATION
  Report Type: Report from Study
  Country: US (occurrence: US)
  Receive Date: 20130516
  Receipt Date: 20130516
  Transmission Date: 20140414
  Serious: Yes (Other)
  Sender: FDA-Public Use
  Company Number: US-US-EMD SERONO, INC.-7210368

PATIENT
  Age: 36 Year
  Sex: Male

DRUGS (3)
  1. REBIF [Suspect]
     Indication: MULTIPLE SCLEROSIS
     Route: 058
     Dates: start: 20120215, end: 2013
  2. REBIF [Suspect]
     Route: 058
     Dates: start: 20130418, end: 20130422
  3. REBIF [Suspect]
     Route: 058
     Dates: start: 20130508

REACTIONS (6)
  - Pneumonia [Recovering/Resolving]
  - Unresponsive to stimuli [Recovering/Resolving]
  - Tremor [Unknown]
  - Gait disturbance [Unknown]
  - Asthenia [Unknown]
  - Fatigue [Unknown]
